FAERS Safety Report 5065531-2 (Version None)
Quarter: 2006Q3

REPORT INFORMATION
  Report Type: 
  Country: None (occurrence: None)
  Receive Date: 20060731
  Receipt Date: 20060105
  Transmission Date: 20061208
  Serious: Yes (Hospitalization)
  Sender: FDA-Public Use
  Company Number: FR-GLAXOSMITHKLINE-B0405753B

PATIENT
  Sex: Male
  Weight: 1.9 kg

DRUGS (4)
  1. RETROVIR [Suspect]
     Indication: ANTIVIRAL PROPHYLAXIS
     Dosage: 1.5MGK TWICE PER DAY
     Route: 042
     Dates: start: 20051128, end: 20051204
  2. COMBIVIR [Suspect]
     Indication: HIV INFECTION
  3. RETROVIR [Concomitant]
     Route: 048
     Dates: start: 20051205
  4. VIRACEPT [Concomitant]
     Indication: HIV INFECTION

REACTIONS (2)
  - ANAEMIA [None]
  - DRUG EXPOSURE DURING PREGNANCY [None]
